FAERS Safety Report 12356043 (Version 2)
Quarter: 2016Q2

REPORT INFORMATION
  Report Type: Spontaneous
  Country: US (occurrence: US)
  Receive Date: 20160511
  Receipt Date: 20160615
  Transmission Date: 20160815
  Serious: Yes (Other)
  Sender: FDA-Public Use
  Company Number: US-PFIZER INC-2016251969

PATIENT
  Age: 67 Year
  Sex: Female
  Weight: 60.33 kg

DRUGS (6)
  1. PROGESTERONE. [Concomitant]
     Active Substance: PROGESTERONE
     Indication: HORMONE REPLACEMENT THERAPY
     Dosage: 10MG RUBBED ON THE BOTTOM OF ARMS OR THIGHS; APPLIED TO SKIN
     Dates: start: 1998
  2. WP THYROID [Concomitant]
     Indication: THYROID DISORDER
     Dosage: 32.5 MG, DAILY AT 3 AM IN MORNING
     Route: 048
     Dates: start: 201511
  3. T3 SR [Concomitant]
     Indication: AUTOIMMUNE THYROIDITIS
     Dosage: 15 UG, DAILY AT NIGHT
     Route: 048
  4. T3 SR [Concomitant]
     Dosage: 20 UG, DAILY AT NIGHT
  5. PRISTIQ EXTENDED-RELEASE [Suspect]
     Active Substance: DESVENLAFAXINE SUCCINATE
     Indication: DEPRESSION
     Dosage: 50 MG, 1X/DAY
     Route: 048
     Dates: start: 2013, end: 2013
  6. BIEST [Concomitant]
     Active Substance: ESTRADIOL\ESTRIOL
     Indication: HORMONE REPLACEMENT THERAPY
     Dosage: 10 MG, 1X/DAY
     Route: 048
     Dates: start: 1998

REACTIONS (3)
  - Autoimmune thyroiditis [Not Recovered/Not Resolved]
  - Abdominal pain upper [Recovered/Resolved]
  - Nausea [Recovered/Resolved]

NARRATIVE: CASE EVENT DATE: 2013
